FAERS Safety Report 5233595-9 (Version None)
Quarter: 2007Q1

REPORT INFORMATION
  Report Type: 
  Country: None (occurrence: None)
  Receive Date: 20070208
  Receipt Date: 20070130
  Transmission Date: 20070707
  Serious: Yes (Hospitalization, Other)
  Sender: FDA-Public Use
  Company Number: US-AMGEN-US207082

PATIENT
  Sex: Female

DRUGS (2)
  1. PROCRIT [Suspect]
     Indication: RENAL FAILURE CHRONIC
     Route: 058
     Dates: start: 20010615
  2. VITAMIN B-12 [Concomitant]

REACTIONS (3)
  - APLASIA PURE RED CELL [None]
  - HAEMATOCRIT DECREASED [None]
  - PULMONARY EMBOLISM [None]
